FAERS Safety Report 10622803 (Version 1)
Quarter: 2014Q4

REPORT INFORMATION
  Report Type: Spontaneous
  Country: US (occurrence: None)
  Receive Date: 20141202
  Receipt Date: 20141202
  Transmission Date: 20150529
  Serious: No
  Sender: FDA-Public Use
  Company Number: None

PATIENT
  Age: 34 Year
  Sex: Male
  Weight: 90.72 kg

DRUGS (1)
  1. CYCLOBENZAPRINE [Suspect]
     Active Substance: CYCLOBENZAPRINE
     Indication: JOINT INJURY
     Dosage: 1 TABLET
     Route: 048
     Dates: start: 20141201, end: 20141201

REACTIONS (2)
  - Aggression [None]
  - Anger [None]

NARRATIVE: CASE EVENT DATE: 20141201
